FAERS Safety Report 10974103 (Version 2)
Quarter: 2015Q1

REPORT INFORMATION
  Report Type: Spontaneous
  Country: None (occurrence: None)
  Receive Date: 20150226
  Receipt Date: 20150226
  Transmission Date: 20150721
  Serious: No
  Sender: FDA-Public Use
  Company Number: TPA2009A00979

PATIENT
  Age: 53 Year
  Sex: Male
  Weight: 181.44 kg

DRUGS (7)
  1. ULORIC [Suspect]
     Active Substance: FEBUXOSTAT
     Indication: HYPERURICAEMIA
     Route: 048
     Dates: start: 20090403, end: 20090429
  2. METOPROLOL [Concomitant]
     Active Substance: METOPROLOL
  3. PRILOSEC (OMEPRAZOLE) [Concomitant]
     Active Substance: OMEPRAZOLE MAGNESIUM
  4. COZAAR [Concomitant]
     Active Substance: LOSARTAN POTASSIUM
  5. COLCHICINE. [Concomitant]
     Active Substance: COLCHICINE
  6. VENTOLIN HFA (SALBUTAMOL) [Concomitant]
  7. ULORIC [Suspect]
     Active Substance: FEBUXOSTAT
     Indication: GOUT
     Route: 048
     Dates: start: 20090403, end: 20090429

REACTIONS (8)
  - Nausea [None]
  - Hair colour changes [None]
  - Arthralgia [None]
  - Condition aggravated [None]
  - Vomiting [None]
  - Chromaturia [None]
  - Dizziness [None]
  - Skin discolouration [None]

NARRATIVE: CASE EVENT DATE: 200903
